FAERS Safety Report 6022388-0 (Version None)
Quarter: 2008Q4

REPORT INFORMATION
  Report Type: 
  Country: None (occurrence: None)
  Receive Date: 20081223
  Receipt Date: 20081223
  Transmission Date: 20090506
  Serious: Yes (Life-Threatening)
  Sender: FDA-Public Use
  Company Number: None

PATIENT
  Age: 63 Year
  Sex: Female
  Weight: 102.1 kg

DRUGS (1)
  1. BACTRIM DS [Suspect]
     Dosage: 1 TABLET DAILY FOR 10 DAYS PO
     Route: 048
     Dates: start: 20081107, end: 20081112

REACTIONS (4)
  - NO THERAPEUTIC RESPONSE [None]
  - SKIN ODOUR ABNORMAL [None]
  - STEVENS-JOHNSON SYNDROME [None]
  - TOXIC EPIDERMAL NECROLYSIS [None]
